FAERS Safety Report 9375966 (Version 2)
Quarter: 2013Q3

REPORT INFORMATION
  Report Type: Report from Study
  Country: US (occurrence: US)
  Receive Date: 20130629
  Receipt Date: 20130805
  Transmission Date: 20140515
  Serious: Yes (Hospitalization, Other)
  Sender: FDA-Public Use
  Company Number: US-009507513-1306USA012555

PATIENT
  Age: 61 Year
  Sex: Male
  Weight: 67.57 kg

DRUGS (7)
  1. RIBAVIRIN [Suspect]
     Indication: HEPATITIS C
     Dosage: UNK
     Route: 048
     Dates: start: 20130508, end: 20130519
  2. RIBAVIRIN [Suspect]
     Indication: HIV INFECTION
     Dosage: 400MG IN AM AND 600MG IN PM, QD
     Route: 048
  3. PEGINTERFERON ALFA-2B [Suspect]
     Indication: HEPATITIS C
     Dosage: 96 MICROGRAM, QW
     Route: 058
     Dates: start: 20130508
  4. PEGINTERFERON ALFA-2B [Suspect]
     Indication: HIV INFECTION
     Dosage: 84 MICROGRAM, QW
     Route: 058
     Dates: start: 20130621
  5. BOCEPREVIR [Suspect]
     Indication: HEPATITIS C
     Dosage: UNK
     Route: 048
     Dates: start: 20130605
  6. BOCEPREVIR [Suspect]
     Indication: HIV INFECTION
     Dosage: 2400 MG, TID
     Route: 048
  7. RESVERATROL [Concomitant]

REACTIONS (2)
  - Neutropenia [Recovered/Resolved]
  - Pyrexia [Recovered/Resolved]
